FAERS Safety Report 7529329-5 (Version None)
Quarter: 2011Q2

REPORT INFORMATION
  Report Type: 
  Country: None (occurrence: None)
  Receive Date: 20110607
  Receipt Date: 20110527
  Transmission Date: 20111010
  Serious: Yes (Hospitalization, Other)
  Sender: FDA-Public Use
  Company Number: JP-ROCHE-780453

PATIENT
  Sex: Male

DRUGS (22)
  1. CAPECITABINE [Suspect]
     Indication: RECTAL CANCER METASTATIC
     Dosage: DRUG: XELODA 300
     Route: 048
     Dates: start: 20100511, end: 20100524
  2. CAPECITABINE [Suspect]
     Route: 048
     Dates: start: 20100712, end: 20100725
  3. OXALIPLATIN [Suspect]
     Route: 042
     Dates: start: 20100823, end: 20100823
  4. OXALIPLATIN [Suspect]
     Route: 042
     Dates: start: 20100913, end: 20100913
  5. VERAPAMIL HCL [Concomitant]
     Dosage: DOSAGE IS UNCERTAIN
     Route: 048
     Dates: end: 20101026
  6. WARFARIN POTASSIUM [Concomitant]
     Dosage: DOSAGE IS UNCERTAIN, DRUG: WARFARIN(WARFARIN POTASSIUM)
     Route: 048
     Dates: end: 20101026
  7. DECADRON [Concomitant]
     Dosage: NOTE: ONLY AT TREATMENT, DRUG:DECADRON(DEXAMETHASONE SODIUM PHOSPHATE)
     Route: 042
     Dates: start: 20100511, end: 20100913
  8. CAPECITABINE [Suspect]
     Route: 048
     Dates: start: 20100621, end: 20100704
  9. CAPECITABINE [Suspect]
     Route: 048
     Dates: start: 20100913, end: 20100920
  10. OXALIPLATIN [Suspect]
     Route: 042
     Dates: start: 20100712, end: 20100712
  11. CAPECITABINE [Suspect]
     Route: 048
     Dates: start: 20100823, end: 20100905
  12. OXALIPLATIN [Suspect]
     Route: 042
     Dates: start: 20100621, end: 20100621
  13. PYDOXAL [Concomitant]
     Dosage: PYDOXAL TAB
     Route: 048
     Dates: start: 20100511, end: 20100920
  14. ALOXI [Concomitant]
     Dosage: NOTE: ONLY WHEN UNCERTAIN DOSAGE IS TREATED
     Route: 042
     Dates: start: 20100913, end: 20100913
  15. OXALIPLATIN [Suspect]
     Indication: RECTAL CANCER METASTATIC
     Route: 042
     Dates: start: 20100511, end: 20100511
  16. CIBENOL [Concomitant]
     Dosage: CIBENOL(CIBENZOLINE SUCCINATE), DOSAGE IS UNCERTAIN
     Route: 048
     Dates: end: 20101026
  17. UREPEARL [Concomitant]
     Dosage: FORM: EXTERNAL PREPARATION
     Route: 003
     Dates: start: 20100512, end: 20100512
  18. LOPERAMIDE HCL [Concomitant]
     Dosage: NOTE: PROPERLY
     Route: 048
     Dates: start: 20100531, end: 20100712
  19. KYTRIL [Concomitant]
     Dosage: DRUG: KYTRIL INJECTION(GRANISETRON), NOTE: ONLY AT TREATMENT
     Route: 042
     Dates: start: 20100511, end: 20100823
  20. CAPECITABINE [Suspect]
     Route: 048
     Dates: start: 20100531, end: 20100614
  21. OXALIPLATIN [Suspect]
     Route: 042
     Dates: start: 20100531, end: 20100531
  22. CARVEDILOL [Concomitant]
     Dosage: DOSAGE IS UNCERTAIN
     Route: 048
     Dates: end: 20101026

REACTIONS (10)
  - PLATELET COUNT DECREASED [None]
  - ABDOMINAL PAIN [None]
  - PALMAR-PLANTAR ERYTHRODYSAESTHESIA SYNDROME [None]
  - URTICARIA [None]
  - BLOOD BILIRUBIN INCREASED [None]
  - NEUROPATHY PERIPHERAL [None]
  - OEDEMA [None]
  - PROTEINURIA [None]
  - ASCITES [None]
  - DIARRHOEA [None]
